FAERS Safety Report 8991307 (Version 1)
Quarter: 2012Q4

REPORT INFORMATION
  Report Type: 
  Country: US (occurrence: US)
  Receive Date: 20121231
  Receipt Date: 20121231
  Transmission Date: 20130627
  Serious: Yes (Other)
  Sender: FDA-Public Use
  Company Number: US-ROCHE-1174006

PATIENT
  Age: 62 Year
  Sex: Female

DRUGS (4)
  1. ACTEMRA [Suspect]
     Indication: RHEUMATOID ARTHRITIS
     Route: 065
  2. ACTEMRA [Suspect]
     Route: 065
  3. METHOTREXATE [Concomitant]
     Route: 065
  4. ADALIMUMAB [Concomitant]

REACTIONS (5)
  - Leprosy [Unknown]
  - Drug ineffective [Unknown]
  - Rash [Unknown]
  - Paraesthesia [Unknown]
  - Hypoaesthesia [Unknown]
